FAERS Safety Report 23088725 (Version 2)
Quarter: 2023Q4

REPORT INFORMATION
  Report Type: Spontaneous
  Country: ES (occurrence: ES)
  Receive Date: 20231020
  Receipt Date: 20231229
  Transmission Date: 20240110
  Serious: Yes (Other)
  Sender: FDA-Public Use
  Company Number: ES-MYLANLABS-2023M1108901

PATIENT
  Age: 56 Year
  Sex: Female
  Weight: 63 kg

DRUGS (18)
  1. PACLITAXEL [Suspect]
     Active Substance: PACLITAXEL
     Indication: Ovarian cancer stage III
     Dosage: 175 MILLIGRAM/SQ. METER, CYCLE
     Route: 065
     Dates: start: 201509
  2. PACLITAXEL [Suspect]
     Active Substance: PACLITAXEL
     Dosage: 80 MILLIGRAM/SQ. METER, QW, CYCLICAL AS FIFTH-LINE THERAPY I
     Route: 065
     Dates: start: 202004
  3. PACLITAXEL [Suspect]
     Active Substance: PACLITAXEL
     Indication: Ovarian cancer stage III
     Dosage: UNK
     Route: 033
     Dates: start: 201601
  4. CARBOPLATIN [Suspect]
     Active Substance: CARBOPLATIN
     Indication: Ovarian cancer stage III
     Dosage: UNK UNK, CYCLE ( FOUR CYCLES OF CARBOPLATIN AUC 5)
     Route: 065
     Dates: start: 201509
  5. CARBOPLATIN [Suspect]
     Active Substance: CARBOPLATIN
     Dosage: UNK, CYCLE,  AUC 5 ON DAY 1 (SECOND LINE OF CHEMOTHERAPY)
     Route: 065
     Dates: start: 201704
  6. CARBOPLATIN [Suspect]
     Active Substance: CARBOPLATIN
     Dosage: UNK UNK, CYCLE (THIRD-LINE TREATMENT WAS STARTED AUC 5)
     Route: 065
  7. BEVACIZUMAB [Suspect]
     Active Substance: BEVACIZUMAB
     Indication: Ovarian cancer stage III
     Dosage: 7.5 MILLIGRAM/SQ. METER, Q21D, CYCLICAL
     Route: 065
     Dates: start: 201509, end: 201701
  8. BEVACIZUMAB [Suspect]
     Active Substance: BEVACIZUMAB
     Dosage: 7.5 MILLIGRAM/KILOGRAM, CYCLE
     Route: 065
     Dates: start: 201811
  9. OLAPARIB [Suspect]
     Active Substance: OLAPARIB
     Indication: Ovarian cancer stage III
     Dosage: 50 MILLIGRAM, BID
     Route: 065
     Dates: start: 201709
  10. ATEZOLIZUMAB [Suspect]
     Active Substance: ATEZOLIZUMAB
     Indication: Ovarian cancer stage III
     Dosage: 1200 MILLIGRAM, Q21D, CYCLICAL
     Route: 065
     Dates: start: 201811
  11. TRABECTEDIN [Suspect]
     Active Substance: TRABECTEDIN
     Indication: Ovarian cancer stage III
     Dosage: 1.1 MILLIGRAM/SQ. METER, CYCLE
     Route: 065
     Dates: start: 201909, end: 202003
  12. DOXORUBICIN [Suspect]
     Active Substance: DOXORUBICIN
     Indication: Ovarian cancer stage III
     Dosage: 30 MILLIGRAM/SQ. METER, Q21D, CYCLICAL, LIPOSOMAL
     Route: 065
     Dates: start: 201909, end: 202003
  13. GEMCITABINE [Concomitant]
     Active Substance: GEMCITABINE
     Indication: Ovarian cancer stage III
     Dosage: 1000 MILLIGRAM/SQ. METER, Q3W ON DAYS 1 AND 8 EVERY 3 WEEKS CYCLICAL
     Route: 065
     Dates: start: 201704
  14. GEMCITABINE [Concomitant]
     Active Substance: GEMCITABINE
     Dosage: UNK
     Route: 065
     Dates: start: 201811
  15. CISPLATIN [Concomitant]
     Active Substance: CISPLATIN
     Indication: Ovarian cancer stage III
     Dosage: UNK UNK, CYCLE
     Route: 065
  16. ROSUVASTATIN [Concomitant]
     Active Substance: ROSUVASTATIN
     Indication: Hypercholesterolaemia
     Dosage: 10 MILLIGRAM, QD
     Route: 065
  17. LEVOTHYROXINE [Concomitant]
     Active Substance: LEVOTHYROXINE
     Indication: Hypothyroidism
     Dosage: 50 MILLIGRAM, QD
     Route: 065
  18. HYDROCHLOROTHIAZIDE\IRBESARTAN [Concomitant]
     Active Substance: HYDROCHLOROTHIAZIDE\IRBESARTAN
     Indication: Hypertension
     Dosage: UNK
     Route: 065

REACTIONS (4)
  - Disease progression [Unknown]
  - Drug ineffective [Unknown]
  - Anaemia [Unknown]
  - Off label use [Unknown]

NARRATIVE: CASE EVENT DATE: 20160101
